FAERS Safety Report 26017732 (Version 2)
Quarter: 2025Q4

REPORT INFORMATION
  Report Type: Report from Study
  Country: US (occurrence: US)
  Receive Date: 20251110
  Receipt Date: 20251115
  Transmission Date: 20260118
  Serious: Yes (Hospitalization, Other)
  Sender: ABBVIE
  Company Number: US-ABBVIE-6539158

PATIENT
  Age: 77 Year
  Sex: Female

DRUGS (1)
  1. VYALEV [Suspect]
     Active Substance: FOSCARBIDOPA\FOSLEVODOPA
     Indication: Parkinson^s disease
     Route: 058
     Dates: start: 20251024, end: 20251104

REACTIONS (2)
  - Injection site cellulitis [Recovering/Resolving]
  - Injection site infection [Not Recovered/Not Resolved]

NARRATIVE: CASE EVENT DATE: 20250101
